FAERS Safety Report 10986367 (Version 2)
Quarter: 2015Q2

REPORT INFORMATION
  Report Type: Spontaneous
  Country: PT (occurrence: None)
  Receive Date: 20150402
  Receipt Date: 20150422
  Transmission Date: 20150821
  Serious: Yes (Hospitalization)
  Sender: FDA-Public Use
  Company Number: FK201501523

PATIENT
  Age: 56 Year
  Sex: Female

DRUGS (5)
  1. OXALIPLATIN 5MG/ML CONCENTRATE FOR SOLUTION FOR INFUSION (OXALIPLATIN) (OXALIPLATIN) [Suspect]
     Active Substance: OXALIPLATIN
     Indication: COLORECTAL CANCER
     Dates: start: 20150227
  2. CAPECITABINE. [Concomitant]
     Active Substance: CAPECITABINE
  3. ZOLNAR (AZOR) [Concomitant]
  4. LANSOPRAZOL (LANSOPRAZOLE) [Concomitant]
  5. PAROXETINE [Concomitant]
     Active Substance: PAROXETINE\PAROXETINE HYDROCHLORIDE

REACTIONS (3)
  - Faecal incontinence [None]
  - Urinary incontinence [None]
  - Drug hypersensitivity [None]

NARRATIVE: CASE EVENT DATE: 20150227
